FAERS Safety Report 4518037-0 (Version None)
Quarter: 2004Q4

REPORT INFORMATION
  Report Type: 
  Country: None (occurrence: None)
  Receive Date: 20041203
  Receipt Date: 20041027
  Transmission Date: 20050328
  Serious: Yes (Hospitalization)
  Sender: FDA-Public Use
  Company Number: JP-BRISTOL-MYERS SQUIBB COMPANY-12750519

PATIENT
  Age: 71 Year
  Sex: Female

DRUGS (5)
  1. MEVALOTIN [Suspect]
     Indication: HYPERLIPIDAEMIA
     Route: 048
     Dates: start: 20030519, end: 20041021
  2. ACTOS [Concomitant]
     Indication: DIABETES MELLITUS
     Dates: start: 20020104
  3. CRAMITON [Concomitant]
     Indication: DIABETES MELLITUS
     Dates: start: 19960918
  4. BASEN [Concomitant]
     Indication: DIABETES MELLITUS
     Dates: start: 20030419
  5. ODRIK [Concomitant]
     Indication: DIABETIC NEUROPATHY
     Dates: start: 20020417

REACTIONS (4)
  - DEHYDRATION [None]
  - DIABETIC COMA [None]
  - PNEUMONIA BACTERIAL [None]
  - RHABDOMYOLYSIS [None]
